FAERS Safety Report 14517234 (Version 1)
Quarter: 2018Q1

REPORT INFORMATION
  Report Type: Spontaneous
  Country: PT (occurrence: PT)
  Receive Date: 20180212
  Receipt Date: 20180212
  Transmission Date: 20180509
  Serious: Yes (Hospitalization)
  Sender: FDA-Public Use
  Company Number: PT-ROCHE-2069373

PATIENT
  Age: 15 Year
  Sex: Male

DRUGS (12)
  1. CLONAZEPAM. [Suspect]
     Active Substance: CLONAZEPAM
     Indication: TIC
  2. LAMOTRIGINE. [Suspect]
     Active Substance: LAMOTRIGINE
     Indication: INTENTIONAL SELF-INJURY
  3. CLONAZEPAM. [Suspect]
     Active Substance: CLONAZEPAM
     Indication: ANXIETY
     Route: 065
  4. LAMOTRIGINE. [Suspect]
     Active Substance: LAMOTRIGINE
     Indication: ANXIETY
     Route: 065
  5. FLUVOXAMINE [Suspect]
     Active Substance: FLUVOXAMINE
     Indication: ANXIETY
     Route: 065
  6. CLONAZEPAM. [Suspect]
     Active Substance: CLONAZEPAM
     Indication: INTENTIONAL SELF-INJURY
  7. PIMOZIDE. [Suspect]
     Active Substance: PIMOZIDE
     Indication: TIC
  8. FLUVOXAMINE [Suspect]
     Active Substance: FLUVOXAMINE
     Indication: TIC
  9. LAMOTRIGINE. [Suspect]
     Active Substance: LAMOTRIGINE
     Indication: TIC
  10. FLUVOXAMINE [Suspect]
     Active Substance: FLUVOXAMINE
     Indication: INTENTIONAL SELF-INJURY
  11. PIMOZIDE. [Suspect]
     Active Substance: PIMOZIDE
     Indication: INTENTIONAL SELF-INJURY
  12. PIMOZIDE. [Suspect]
     Active Substance: PIMOZIDE
     Indication: ANXIETY
     Route: 065

REACTIONS (3)
  - Neuroleptic malignant syndrome [Unknown]
  - Off label use [Unknown]
  - Intentional product use issue [Unknown]
